FAERS Safety Report 21196254 (Version 2)
Quarter: 2022Q3

REPORT INFORMATION
  Report Type: Spontaneous
  Country: US (occurrence: US)
  Receive Date: 20220810
  Receipt Date: 20220831
  Transmission Date: 20221026
  Serious: No
  Sender: FDA-Public Use
  Company Number: US-PFIZER INC-202201045655

PATIENT
  Age: 60 Year
  Sex: Male
  Weight: 151.95 kg

DRUGS (1)
  1. VIAGRA [Suspect]
     Active Substance: SILDENAFIL CITRATE
     Indication: Erectile dysfunction
     Dosage: 50 MG, MONTHLY (SWALLOW WITH WATER ONE TIME A MONTH)
     Route: 048

REACTIONS (6)
  - Hyperhidrosis [Unknown]
  - Erythema [Unknown]
  - Pyrexia [Recovered/Resolved]
  - Burning sensation [Unknown]
  - Dizziness [Recovered/Resolved]
  - Product label confusion [Unknown]
